FAERS Safety Report 12087283 (Version 1)
Quarter: 2016Q1

REPORT INFORMATION
  Report Type: Spontaneous
  Country: US (occurrence: US)
  Receive Date: 20160217
  Receipt Date: 20160217
  Transmission Date: 20160526
  Serious: No
  Sender: FDA-Public Use
  Company Number: US-ALLERGAN-1526459US

PATIENT
  Sex: Female
  Weight: 70.3 kg

DRUGS (7)
  1. BENICAR [Concomitant]
     Active Substance: OLMESARTAN MEDOXOMIL
     Indication: HYPERTENSION
     Dosage: 20 MG, UNK
  2. TIMOPTIC [Suspect]
     Active Substance: TIMOLOL MALEATE
     Indication: GLAUCOMA
     Dosage: 2 GTT, BID
     Route: 047
     Dates: end: 201511
  3. LUMIGAN [Suspect]
     Active Substance: BIMATOPROST
     Indication: GLAUCOMA
     Dosage: 2 GTT, BID
     Route: 047
     Dates: end: 201511
  4. CRESTOR [Concomitant]
     Active Substance: ROSUVASTATIN CALCIUM
     Indication: BLOOD CHOLESTEROL INCREASED
     Dosage: 20 MG, UNK
  5. RESTASIS [Suspect]
     Active Substance: CYCLOSPORINE
     Indication: DRY EYE
     Dosage: 2 GTT, BID
     Route: 047
     Dates: end: 201511
  6. SYNTHROID [Concomitant]
     Active Substance: LEVOTHYROXINE SODIUM
     Indication: THYROID DISORDER
     Dosage: 88 ?G, UNK
  7. LOPID [Concomitant]
     Active Substance: GEMFIBROZIL
     Indication: HYPERTENSION
     Dosage: 600 MG, UNK

REACTIONS (4)
  - Inappropriate schedule of drug administration [Unknown]
  - Eye pain [Recovering/Resolving]
  - Photophobia [Recovering/Resolving]
  - Eye irritation [Recovered/Resolved]
